FAERS Safety Report 9432294 (Version 1)
Quarter: 2013Q3

REPORT INFORMATION
  Report Type: Spontaneous
  Country: US (occurrence: None)
  Receive Date: 20130729
  Receipt Date: 20130729
  Transmission Date: 20140515
  Serious: Yes (Hospitalization)
  Sender: FDA-Public Use
  Company Number: UTC-035725

PATIENT
  Age: 71 Year
  Sex: Female

DRUGS (2)
  1. TYVASO (6 MICROGRAM, AEROSOL FOR INHALATION) (TREPROSTINIL SODIUM) [Suspect]
     Indication: PULMONARY ARTERIAL HYPERTENSION
     Dosage: 4 IN 1 D
     Route: 055
     Dates: start: 20130701, end: 201307
  2. RAVTIO (SILDENAFIL CITRATE) (UNKNOWN) [Concomitant]

REACTIONS (1)
  - Pulmonary oedema [None]
